FAERS Safety Report 12971327 (Version 2)
Quarter: 2021Q3

REPORT INFORMATION
  Report Type: Spontaneous
  Country: US (occurrence: US)
  Receive Date: 20161123
  Receipt Date: 20210817
  Transmission Date: 20211014
  Serious: No
  Sender: FDA-Public Use
  Company Number: US-JAZZ-2016-US-019735

PATIENT
  Sex: Male

DRUGS (25)
  1. ATENOLOL. [Concomitant]
     Active Substance: ATENOLOL
  2. ENTERAGAM [Concomitant]
     Active Substance: DIETARY SUPPLEMENT
  3. HYDROCODONE BITARTRATE AND ACETAMINOPHEN [Concomitant]
     Active Substance: ACETAMINOPHEN\HYDROCODONE BITARTRATE
  4. COENZYME Q10 [Concomitant]
     Active Substance: DIETARY SUPPLEMENT\UBIDECARENONE
  5. GRAPE SEED EXTRACT HS [Concomitant]
  6. METAMUCIL [Concomitant]
     Active Substance: PLANTAGO SEED
  7. XYREM [Suspect]
     Active Substance: SODIUM OXYBATE
     Dosage: DOSE ADJUSTMENT
     Route: 048
     Dates: start: 201208, end: 2015
  8. XYREM [Suspect]
     Active Substance: SODIUM OXYBATE
     Dosage: 3.25 G, BID
     Route: 048
     Dates: start: 201506
  9. BUTALBITAL, ASPIRIN, CAFFEINE AND CODEINE PHO [Concomitant]
  10. FLONASE [MOMETASONE FUROATE] [Concomitant]
     Active Substance: MOMETASONE FUROATE
  11. OXYCODONE [Concomitant]
     Active Substance: OXYCODONE
  12. GLUCOSAMINE CHONDROITIN [Concomitant]
     Active Substance: CHONDROITIN SULFATE (BOVINE)\GLUCOSAMINE HYDROCHLORIDE
  13. AMITRIPTYLINE HCL [Concomitant]
     Active Substance: AMITRIPTYLINE
  14. AZELASTINE. [Concomitant]
     Active Substance: AZELASTINE HYDROCHLORIDE
  15. LUNESTA [Concomitant]
     Active Substance: ESZOPICLONE
  16. FISH OIL [Concomitant]
     Active Substance: FISH OIL
  17. IRON [Concomitant]
     Active Substance: IRON
  18. KRILL OIL [Concomitant]
     Active Substance: DIETARY SUPPLEMENT\KRILL OIL
  19. CHOLESTOFF ORIGINAL [Concomitant]
     Active Substance: PHYTOSTEROLS
  20. XYREM [Suspect]
     Active Substance: SODIUM OXYBATE
     Indication: HYPERSOMNIA
     Dosage: 2.25 G, BID
     Route: 048
     Dates: start: 201207, end: 2012
  21. SAM?E [Concomitant]
     Active Substance: ADEMETIONINE
  22. TESTOSTERONE. [Concomitant]
     Active Substance: TESTOSTERONE
  23. FENTANYL. [Concomitant]
     Active Substance: FENTANYL
  24. HUMIRA [Concomitant]
     Active Substance: ADALIMUMAB
  25. PROCRIT [Concomitant]
     Active Substance: ERYTHROPOIETIN

REACTIONS (1)
  - Hypotension [Not Recovered/Not Resolved]

NARRATIVE: CASE EVENT DATE: 2012
